FAERS Safety Report 8024306-2 (Version None)
Quarter: 2011Q4

REPORT INFORMATION
  Report Type: 
  Country: None (occurrence: None)
  Receive Date: 20111130
  Receipt Date: 20110919
  Transmission Date: 20120403
  Serious: Yes (Hospitalization, Other)
  Sender: FDA-Public Use
  Company Number: 335352

PATIENT
  Age: 11 Year
  Sex: Male

DRUGS (5)
  1. STRATTERA [Concomitant]
  2. IMIPRAMINE [Concomitant]
  3. NOVOLOG [Suspect]
     Indication: TYPE 1 DIABETES MELLITUS
     Dosage: SLIDING SCALE, SUBCUTANEOUS
     Route: 058
     Dates: start: 20110501
  4. LANTUS [Concomitant]
  5. NOVOLOG [Suspect]
     Indication: TYPE 1 DIABETES MELLITUS
     Dosage: , SUBCUTAN.-PUMP
     Route: 058

REACTIONS (2)
  - INCORRECT DOSE ADMINISTERED [None]
  - DIABETIC KETOACIDOSIS [None]
